FAERS Safety Report 5468549-0 (Version None)
Quarter: 2007Q3

REPORT INFORMATION
  Report Type: 
  Country: None (occurrence: None)
  Receive Date: 20070926
  Receipt Date: 20070921
  Transmission Date: 20080115
  Serious: Yes (Life-Threatening, Hospitalization, Disabling)
  Sender: FDA-Public Use
  Company Number: DE-GENENTECH-248167

PATIENT
  Sex: Male

DRUGS (1)
  1. EFALIZUMAB [Suspect]
     Indication: PSORIASIS
     Dosage: 1.3 ML, 1/WEEK
     Route: 058
     Dates: start: 20060522, end: 20070712

REACTIONS (1)
  - ENDOCARDITIS [None]
